FAERS Safety Report 9767189 (Version 1)
Quarter: 2013Q4

REPORT INFORMATION
  Report Type: Spontaneous
  Country: US (occurrence: US)
  Receive Date: 20131217
  Receipt Date: 20131217
  Transmission Date: 20140711
  Serious: No
  Sender: FDA-Public Use
  Company Number: US-GLAXOSMITHKLINE-A1043157A

PATIENT
  Age: 58 Year
  Sex: Female

DRUGS (9)
  1. VOTRIENT [Suspect]
     Indication: SOFT TISSUE CANCER
     Dosage: 600MG PER DAY
     Route: 048
     Dates: start: 20130725
  2. PHENAZOPYRIDINE [Concomitant]
  3. PEPCID [Concomitant]
  4. FUROSEMIDE [Concomitant]
  5. POTASSIUM [Concomitant]
  6. COUMADIN [Concomitant]
  7. MVI [Concomitant]
  8. PROCHLORPERAZINE [Concomitant]
  9. ONDANSETRON [Concomitant]

REACTIONS (1)
  - Hair colour changes [Unknown]
